FAERS Safety Report 14332479 (Version 1)
Quarter: 2017Q4

REPORT INFORMATION
  Report Type: Report from Study
  Country: IN (occurrence: IN)
  Receive Date: 20171228
  Receipt Date: 20171228
  Transmission Date: 20180321
  Serious: Yes (Other)
  Sender: FDA-Public Use
  Company Number: IN-MYLANLABS-2017M1079769

PATIENT
  Age: 63 Year
  Sex: Female

DRUGS (6)
  1. AMIODARONE [Suspect]
     Active Substance: AMIODARONE
     Indication: ATRIAL FIBRILLATION
     Dosage: 3ML (150MG) WAS DILUTED IN 100ML OF 5% GLUCOSE IN WATER (CONCENTRATION OF 1.5 MG/ML); INJECTION W...
     Route: 041
  2. DEXTROSE. [Concomitant]
     Active Substance: DEXTROSE
     Indication: ATRIAL FIBRILLATION
     Dosage: AMIODARONE WAS DILUTED IN DILUTED IN 100ML OF 5% GLUCOSE IN WATER (CONCENTRATION OF 1.5 MG/ML)
     Route: 041
  3. LOSARTAN. [Concomitant]
     Active Substance: LOSARTAN
     Indication: HYPERTENSION
     Dosage: 25 MG/DAY
     Route: 065
  4. AMLODIPINE [Concomitant]
     Active Substance: AMLODIPINE BESYLATE
     Indication: HYPERTENSION
     Dosage: 10 MG/DAY
     Route: 065
  5. AMIODARONE [Suspect]
     Active Substance: AMIODARONE
     Dosage: FOLLOWED BY A MAINTENANCE INFUSION AT A RATE OF 0.5 MG/MINUTE (DOSE UNKNOWN)
     Route: 041
  6. ATENOLOL. [Suspect]
     Active Substance: ATENOLOL
     Indication: HYPERTENSION
     Dosage: 50 MG/DAY
     Route: 065

REACTIONS (1)
  - Torsade de pointes [Recovering/Resolving]
